FAERS Safety Report 15378576 (Version 1)
Quarter: 2018Q3

REPORT INFORMATION
  Report Type: Report from Study
  Country: GB (occurrence: GB)
  Receive Date: 20180913
  Receipt Date: 20180913
  Transmission Date: 20181010
  Serious: Yes (Death)
  Sender: FDA-Public Use
  Company Number: GB-CELGENEUS-GBR-20180903638

PATIENT
  Age: 78 Year
  Sex: Male
  Weight: 72.8 kg

DRUGS (1)
  1. AG?221 [Suspect]
     Active Substance: ENASIDENIB
     Indication: ACUTE MYELOID LEUKAEMIA
     Dosage: 100 MILLIGRAM
     Route: 048
     Dates: start: 20180608

REACTIONS (1)
  - Death [Fatal]

NARRATIVE: CASE EVENT DATE: 20180902
